FAERS Safety Report 8579366-7 (Version None)
Quarter: 2012Q3

REPORT INFORMATION
  Report Type: 
  Country: None (occurrence: None)
  Receive Date: 20120808
  Receipt Date: 20120719
  Transmission Date: 20120928
  Serious: Yes (Other)
  Sender: FDA-Public Use
  Company Number: CN-BAXTER-2012BAX012348

PATIENT
  Sex: Female
  Weight: 64 kg

DRUGS (1)
  1. MANNITOL [Suspect]
     Indication: UVEITIS
     Route: 041
     Dates: start: 20101022, end: 20101022

REACTIONS (3)
  - ASTHENIA [None]
  - CHILLS [None]
  - ANAPHYLACTOID REACTION [None]
